FAERS Safety Report 11422173 (Version 1)
Quarter: 2015Q3

REPORT INFORMATION
  Report Type: Spontaneous
  Country: FR (occurrence: None)
  Receive Date: 20150825
  Receipt Date: 20150825
  Transmission Date: 20151125
  Serious: Yes (Other)
  Sender: FDA-Public Use
  Company Number: 2015FE02841

PATIENT
  Age: 87 Year
  Sex: Male

DRUGS (10)
  1. XARELTO [Concomitant]
     Active Substance: RIVAROXABAN
  2. MACROGOL 4000 [Concomitant]
     Active Substance: POLYETHYLENE GLYCOL 4000
  3. TANGANIL /00129601/ (ETHANOLAMINE ACETYLLEUCINATE) [Concomitant]
  4. XTANDI [Suspect]
     Active Substance: ENZALUTAMIDE
     Indication: PRODUCT USED FOR UNKNOWN INDICATION
     Route: 048
     Dates: start: 20150120, end: 201505
  5. EXFORGE (AMLODIPINE BESILATE, VALSARTAN) [Concomitant]
  6. MIANSERINE (MIANSERIN HYDROCHLORIDE) [Concomitant]
  7. NAABAK /01266803/ (ISOSPAGLUMIC ACID SODIUM) [Concomitant]
  8. FIRMAGON [Suspect]
     Active Substance: DEGARELIX ACETATE
     Indication: PRODUCT USED FOR UNKNOWN INDICATION
     Route: 058
     Dates: start: 20150120
  9. PANTOPRAZOLE [Concomitant]
     Active Substance: PANTOPRAZOLE SODIUM
  10. VERATRAN (CLOTIAZEPAM) [Concomitant]

REACTIONS (3)
  - Burning sensation [None]
  - Neuralgia [None]
  - Insomnia [None]

NARRATIVE: CASE EVENT DATE: 201503
